FAERS Safety Report 8243290 (Version 8)
Quarter: 2012Q4

REPORT INFORMATION
  Report Type: 
  Country: US (occurrence: US)
  Receive Date: 20111114
  Receipt Date: 20121015
  Transmission Date: 20130627
  Serious: Yes (Hospitalization, Disabling, Other)
  Sender: FDA-Public Use
  Company Number: US-009507513-1111USA01290

PATIENT

DRUGS (6)
  1. FOSAMAX [Suspect]
     Indication: OSTEOPOROSIS
     Dosage: 10 mg, UNK
     Route: 048
     Dates: start: 20001005, end: 200211
  2. FOSAMAX [Suspect]
     Indication: OSTEOPENIA
     Dosage: 70 mg, UNK
     Route: 048
     Dates: start: 20021126, end: 200706
  3. FOSAMAX PLUS D [Suspect]
     Indication: OSTEOPOROSIS
     Dosage: 70-2800
     Route: 048
     Dates: start: 20070309, end: 20080627
  4. FOSAMAX PLUS D [Suspect]
     Indication: OSTEOPENIA
     Dosage: 70-5600
     Route: 048
     Dates: start: 20081003, end: 20090104
  5. CALCIUM (UNSPECIFIED) [Concomitant]
     Dosage: 600 mg, qd
     Route: 048
     Dates: start: 1997
  6. HORMONES (UNSPECIFIED) [Concomitant]
     Route: 048
     Dates: start: 1997, end: 2002

REACTIONS (34)
  - Low turnover osteopathy [Not Recovered/Not Resolved]
  - Femur fracture [Recovered/Resolved]
  - Post procedural haemorrhage [Unknown]
  - Hypercholesterolaemia [Unknown]
  - Cervicobrachial syndrome [Unknown]
  - Spinal osteoarthritis [Unknown]
  - Skin graft [Unknown]
  - Cervical spinal stenosis [Unknown]
  - Femur fracture [Recovered/Resolved]
  - Myalgia [Unknown]
  - Vitamin D deficiency [Unknown]
  - Calcium deficiency [Unknown]
  - Dry eye [Unknown]
  - Gingival disorder [Unknown]
  - Varicose vein [Unknown]
  - Urinary tract infection [Unknown]
  - Hepatic cyst [Unknown]
  - Gallbladder disorder [Unknown]
  - Spinal osteoarthritis [Unknown]
  - Renal cyst [Unknown]
  - Blood oestrogen decreased [Unknown]
  - Hand fracture [Unknown]
  - Intervertebral disc protrusion [Recovering/Resolving]
  - Anxiety [Unknown]
  - Urinary tract infection [Unknown]
  - Nocturia [Unknown]
  - Micturition urgency [Unknown]
  - Vulvovaginal dryness [Unknown]
  - Urine ketone body present [Unknown]
  - Nausea [Unknown]
  - Contusion [Unknown]
  - Antiphospholipid antibodies [Unknown]
  - Blood alkaline phosphatase increased [Unknown]
  - Anaemia [Unknown]
